FAERS Safety Report 4446656-9 (Version None)
Quarter: 2004Q3

REPORT INFORMATION
  Report Type: 
  Country: None (occurrence: None)
  Receive Date: 20040902
  Receipt Date: 20040827
  Transmission Date: 20050211
  Serious: Yes (Life-Threatening, Hospitalization)
  Sender: FDA-Public Use
  Company Number: 2004PK01426

PATIENT
  Age: 61 Year
  Sex: Male
  Weight: 70 kg

DRUGS (2)
  1. PROPOFOL [Suspect]
     Dosage: 2% HR IV
     Route: 042
     Dates: start: 20040731, end: 20040803
  2. XIGRIS [Suspect]
     Indication: SEPSIS
     Dosage: 24 UG/KG DAILY IV
     Route: 042
     Dates: start: 20040731, end: 20040804

REACTIONS (6)
  - CRUSH SYNDROME [None]
  - DIALYSIS [None]
  - RENAL FAILURE [None]
  - RHABDOMYOLYSIS [None]
  - TROPONIN I INCREASED [None]
  - VENTRICULAR DYSFUNCTION [None]
